FAERS Safety Report 19688739 (Version 2)
Quarter: 2021Q4

REPORT INFORMATION
  Report Type: Report from Study
  Country: US (occurrence: US)
  Receive Date: 20210812
  Receipt Date: 20211005
  Transmission Date: 20220303
  Serious: No
  Sender: FDA-Public Use
  Company Number: US-LUNDBECK-DKLU3036626

PATIENT
  Age: 51 Year
  Sex: Female

DRUGS (1)
  1. VYEPTI [Suspect]
     Active Substance: EPTINEZUMAB-JJMR
     Indication: Migraine
     Route: 041
     Dates: start: 20210730

REACTIONS (5)
  - Sinus headache [Unknown]
  - Neck pain [Unknown]
  - Condition aggravated [Unknown]
  - Infusion site discomfort [Unknown]
  - Headache [Unknown]
